FAERS Safety Report 8422843-X (Version None)
Quarter: 2012Q2

REPORT INFORMATION
  Report Type: 
  Country: None (occurrence: None)
  Receive Date: 20120608
  Receipt Date: 20120604
  Transmission Date: 20120825
  Serious: Yes (Other)
  Sender: FDA-Public Use
  Company Number: US-TEVA-341856USA

PATIENT
  Sex: Female

DRUGS (2)
  1. ALENDRONATE SODIUM [Suspect]
     Indication: OSTEOPENIA
  2. ALENDRONATE SODIUM [Suspect]
     Indication: OSTEOPENIA

REACTIONS (4)
  - JOINT INJURY [None]
  - FEMUR FRACTURE [None]
  - OSTEONECROSIS [None]
  - FALL [None]
